FAERS Safety Report 9115615 (Version 1)
Quarter: 2013Q1

REPORT INFORMATION
  Report Type: Spontaneous
  Country: US (occurrence: US)
  Receive Date: 20130225
  Receipt Date: 20130225
  Transmission Date: 20140127
  Serious: No
  Sender: FDA-Public Use
  Company Number: US-BRISTOL-MYERS SQUIBB COMPANY-16388456

PATIENT
  Sex: Female

DRUGS (2)
  1. KENALOG [Suspect]
     Indication: OSTEOARTHRITIS
     Dosage: FORM: MIXED WITH LIDOCAINE 1DF= 6SHOTS IN LOWER SPINE, 1 ON LEFT HIP, 2 RIGHT HIP.
     Dates: start: 20120119
  2. LIDOCAINE [Suspect]

REACTIONS (2)
  - Burning sensation [Not Recovered/Not Resolved]
  - Pruritus [Unknown]
